FAERS Safety Report 5157426-0 (Version None)
Quarter: 2006Q4

REPORT INFORMATION
  Report Type: 
  Country: None (occurrence: None)
  Receive Date: 20061127
  Receipt Date: 20060912
  Transmission Date: 20070319
  Serious: Yes (Hospitalization)
  Sender: FDA-Public Use
  Company Number: GB-NOVOPROD-257094

PATIENT
  Sex: Male
  Weight: 64.05 kg

DRUGS (3)
  1. LEVEMIR [Suspect]
     Indication: DIABETES MELLITUS
     Dosage: 8 IU, QD
     Route: 058
     Dates: start: 20050511
  2. LEVEMIR [Suspect]
     Dosage: 6 IU, QD
     Route: 058
     Dates: start: 20051027
  3. NOVORAPID [Concomitant]
     Dosage: 16 IU, QD
     Route: 058
     Dates: start: 20050511

REACTIONS (8)
  - BLOOD GLUCOSE INCREASED [None]
  - CIRCULATORY COLLAPSE [None]
  - DECREASED APPETITE [None]
  - DIZZINESS [None]
  - GAIT DISTURBANCE [None]
  - HYPOGLYCAEMIA [None]
  - LOSS OF CONSCIOUSNESS [None]
  - ORTHOSTATIC HYPOTENSION [None]
